FAERS Safety Report 6760877-1 (Version None)
Quarter: 2010Q2

REPORT INFORMATION
  Report Type: 
  Country: None (occurrence: None)
  Receive Date: 20100607
  Receipt Date: 20100607
  Transmission Date: 20101027
  Serious: Yes (Other)
  Sender: FDA-Public Use
  Company Number: None

PATIENT
  Sex: Female
  Weight: 65.318 kg

DRUGS (1)
  1. VYVANSE [Suspect]
     Dosage: 1 ONCE DAILY PO
     Route: 048
     Dates: start: 20091130, end: 20100605

REACTIONS (2)
  - NO THERAPEUTIC RESPONSE [None]
  - PAIN IN JAW [None]
